FAERS Safety Report 24844853 (Version 2)
Quarter: 2025Q1

REPORT INFORMATION
  Report Type: Spontaneous
  Country: CA (occurrence: CA)
  Receive Date: 20250115
  Receipt Date: 20250120
  Transmission Date: 20250408
  Serious: Yes (Death, Other)
  Sender: KARYOPHARM THERAPEUTICS
  Company Number: CA-KARYOPHARM-2024KPT001939

PATIENT

DRUGS (3)
  1. XPOVIO [Suspect]
     Active Substance: SELINEXOR
     Indication: Plasma cell myeloma
     Dosage: 80 MG, WEEKLY
     Route: 048
     Dates: start: 20241223, end: 202501
  2. DEXAMETHASONE [Concomitant]
     Active Substance: DEXAMETHASONE
  3. BORTEZOMIB [Concomitant]
     Active Substance: BORTEZOMIB

REACTIONS (5)
  - Myocardial infarction [Fatal]
  - Retching [Unknown]
  - Malaise [Unknown]
  - Dizziness [Unknown]
  - Nausea [Unknown]

NARRATIVE: CASE EVENT DATE: 20241201
